FAERS Safety Report 8810433 (Version 2)
Quarter: 2012Q4

REPORT INFORMATION
  Report Type: 
  Country: US (occurrence: US)
  Receive Date: 20120927
  Receipt Date: 20121011
  Transmission Date: 20130627
  Serious: Yes (Hospitalization, Disabling)
  Sender: FDA-Public Use
  Company Number: US-009507513-1209USA007910

PATIENT
  Age: 46 Year
  Sex: Male

DRUGS (5)
  1. ISENTRESS [Suspect]
     Indication: HIV INFECTION
     Dosage: 400 mg, BID
     Route: 048
     Dates: start: 20120625, end: 20120718
  2. TRUVADA [Suspect]
     Indication: HIV INFECTION
     Dosage: 200-300 mg, qd
     Dates: start: 20120625, end: 20120718
  3. GLIPIZIDE [Concomitant]
  4. METFORMIN [Concomitant]
  5. ATOVAQUONE [Concomitant]

REACTIONS (1)
  - Lichenoid keratosis [Recovered/Resolved]
